FAERS Safety Report 8317832 (Version 4)
Quarter: 2012Q4

REPORT INFORMATION
  Report Type: 
  Country: JP (occurrence: JP)
  Receive Date: 20120102
  Receipt Date: 20121004
  Transmission Date: 20130627
  Serious: Yes (Other)
  Sender: FDA-Public Use
  Company Number: PHHY2011JP112335

PATIENT
  Age: 42 None
  Sex: Male

DRUGS (13)
  1. RASILEZ [Suspect]
     Indication: HYPERTENSION
     Dosage: 150 mg, daily
     Route: 048
     Dates: start: 20111007, end: 20111118
  2. OLMETEC [Concomitant]
     Dosage: 40 mg,
     Route: 049
  3. ALDOMET [Concomitant]
     Dosage: 500 mg, UNK
     Route: 048
  4. NATRIX [Concomitant]
     Dosage: 1 mg, UNK
     Route: 048
  5. JANUVIA [Concomitant]
     Dosage: 50 mg, UNK
     Route: 048
  6. MELBIN [Concomitant]
     Dosage: 500 mg, UNK
     Route: 048
  7. MEVALOTIN [Concomitant]
     Dosage: 5 mg, UNK
     Route: 048
  8. BAYASPIRIN [Concomitant]
     Dosage: 100 mg, UNK
     Route: 048
  9. TAKEPRON [Concomitant]
     Dosage: 15 mg, UNK
     Route: 048
  10. CONSTAN [Concomitant]
     Dosage: 0.8 mg, UNK
     Route: 048
  11. OLMESARTAN [Concomitant]
     Dosage: 40 mg, day
  12. METHYLDOPA [Concomitant]
     Dosage: 50 mg, day
  13. INDAPAMIDE [Concomitant]
     Dosage: 1 mg, day

REACTIONS (16)
  - Dyslipidaemia [Recovering/Resolving]
  - Hypertriglyceridaemia [Recovered/Resolved]
  - Blood glucose increased [Unknown]
  - Renal impairment [Recovered/Resolved]
  - Blood urea increased [Unknown]
  - Blood creatinine increased [Unknown]
  - Blood uric acid increased [Unknown]
  - Glomerular filtration rate decreased [Recovering/Resolving]
  - Glycosylated haemoglobin increased [Unknown]
  - Alanine aminotransferase increased [Unknown]
  - Aspartate aminotransferase increased [Unknown]
  - Blood alkaline phosphatase increased [Unknown]
  - Gamma-glutamyltransferase increased [Unknown]
  - Blood lactate dehydrogenase increased [Unknown]
  - Eosinophilia [Recovered/Resolved]
  - Lymphocyte stimulation test positive [Unknown]
